FAERS Safety Report 17729018 (Version 1)
Quarter: 2020Q2

REPORT INFORMATION
  Report Type: Spontaneous
  Country: US (occurrence: US)
  Receive Date: 20200430
  Receipt Date: 20200430
  Transmission Date: 20200714
  Serious: Yes (Life-Threatening, Hospitalization)
  Sender: FDA-Public Use
  Company Number: None

PATIENT
  Age: 34 Year
  Sex: Male
  Weight: 73.5 kg

DRUGS (3)
  1. INVOKANA [Suspect]
     Active Substance: CANAGLIFLOZIN
     Indication: TYPE 2 DIABETES MELLITUS
     Route: 048
     Dates: start: 20200229, end: 20200304
  2. METFORMIN [Suspect]
     Active Substance: METFORMIN HYDROCHLORIDE
     Dates: start: 20200228
  3. LISINOPRIL. [Concomitant]
     Active Substance: LISINOPRIL
     Dates: start: 20200228

REACTIONS (9)
  - Dyspnoea exertional [None]
  - Asthenia [None]
  - Dizziness postural [None]
  - Dyspnoea [None]
  - Ketonuria [None]
  - Diabetic ketoacidosis [None]
  - Tachycardia [None]
  - Abdominal distension [None]
  - Weight decreased [None]

NARRATIVE: CASE EVENT DATE: 20200304
